FAERS Safety Report 19949011 (Version 3)
Quarter: 2021Q4

REPORT INFORMATION
  Report Type: Spontaneous
  Country: TH (occurrence: TH)
  Receive Date: 20211013
  Receipt Date: 20211111
  Transmission Date: 20220303
  Serious: Yes (Death)
  Sender: FDA-Public Use
  Company Number: TH-NOVARTISPH-NVSC2021TH231405

PATIENT
  Age: 68 Year
  Sex: Female

DRUGS (1)
  1. TAFINLAR [Suspect]
     Active Substance: DABRAFENIB MESYLATE
     Indication: Malignant melanoma
     Dosage: 75 MG, BID (300MG (75MG, 2X2))
     Route: 065
     Dates: start: 20210318

REACTIONS (1)
  - Platelet count decreased [Fatal]
